FAERS Safety Report 10400356 (Version 1)
Quarter: 2014Q1

REPORT INFORMATION
  Report Type: Spontaneous
  Country: US (occurrence: None)
  Receive Date: 20130815
  Receipt Date: 20130815
  Transmission Date: 20141002
  Serious: Yes (Hospitalization)
  Sender: FDA-Public Use
  Company Number: ADR-2013-00115

PATIENT
  Sex: 0

DRUGS (1)
  1. LIORESAL INTRATHECAL (BACLOFEN INJECTION)2000MCG/ML [Suspect]
     Dosage: 1400MCG/DAY

REACTIONS (3)
  - Pain [None]
  - Dyspnoea [None]
  - Abdominal rigidity [None]
